FAERS Safety Report 4443485-7 (Version None)
Quarter: 2004Q3

REPORT INFORMATION
  Report Type: 
  Country: None (occurrence: None)
  Receive Date: 20040901
  Receipt Date: 20040820
  Transmission Date: 20050211
  Serious: Yes (Hospitalization)
  Sender: FDA-Public Use
  Company Number: 2004057728

PATIENT
  Sex: Female
  Weight: 54.4316 kg

DRUGS (12)
  1. NICOTROL [Suspect]
     Indication: SMOKING CESSATION THERAPY
     Dosage: ONE PATCH DAILY PRN, TRANSDERMAL
     Route: 062
  2. GABAPENTIN [Concomitant]
  3. PHENYTOIN SODIUM [Concomitant]
  4. LOSARTAN POTASSIUM [Concomitant]
  5. GEMFIBROZIL [Concomitant]
  6. FOLIC ACID [Concomitant]
  7. CONJUGATED ESTROGENS [Concomitant]
  8. NAPROXEN SODIUM [Concomitant]
  9. QUININE SULFATE (QUININE SULFATE) [Concomitant]
  10. ALENDRONATE SODIUM [Concomitant]
  11. DIAZEPAM [Concomitant]
  12. ZOLPIDEM TARTRATE [Concomitant]

REACTIONS (1)
  - LUNG NEOPLASM MALIGNANT [None]
